FAERS Safety Report 8826617 (Version 1)
Quarter: 2012Q4

REPORT INFORMATION
  Report Type: 
  Country: GB (occurrence: GB)
  Receive Date: 20121005
  Receipt Date: 20121005
  Transmission Date: 20130627
  Serious: Yes (Other)
  Sender: FDA-Public Use
  Company Number: CHNY2012GB000606

PATIENT
  Sex: Male

DRUGS (2)
  1. NICOTINE [Suspect]
     Indication: PRODUCT USED FOR UNKNOWN INDICATION
     Dosage: Unk, Unk
     Route: 048
  2. NICOTINE [Suspect]
     Indication: PRODUCT USED FOR UNKNOWN INDICATION
     Dosage: Unk, Unk
     Route: 062

REACTIONS (3)
  - Myocardial infarction [Unknown]
  - Rash [Unknown]
  - Headache [Unknown]
